FAERS Safety Report 5017201-4 (Version None)
Quarter: 2006Q2

REPORT INFORMATION
  Report Type: 
  Country: None (occurrence: None)
  Receive Date: 20060602
  Receipt Date: 20060519
  Transmission Date: 20061013
  Serious: Yes (Hospitalization)
  Sender: FDA-Public Use
  Company Number: BR-ABBOTT-06P-020-0334744-00

PATIENT
  Sex: Female

DRUGS (4)
  1. KALETRA [Suspect]
     Indication: HIV INFECTION
     Route: 048
     Dates: start: 20051228
  2. BACTRIM [Concomitant]
     Indication: PROPHYLAXIS
  3. LAMIVUDINE [Concomitant]
     Indication: HIV INFECTION
  4. STAVUDINE [Concomitant]
     Indication: HIV INFECTION

REACTIONS (2)
  - ASTHENIA [None]
  - LYMPHOMA [None]
